FAERS Safety Report 17942952 (Version 1)
Quarter: 2020Q2

REPORT INFORMATION
  Report Type: Spontaneous
  Country: JP (occurrence: JP)
  Receive Date: 20200625
  Receipt Date: 20200625
  Transmission Date: 20200714
  Serious: Yes (Hospitalization)
  Sender: FDA-Public Use
  Company Number: JP-STRIDES ARCOLAB LIMITED-2020SP007157

PATIENT
  Age: 71 Year
  Sex: Female

DRUGS (9)
  1. ROPIVACAINE. [Suspect]
     Active Substance: ROPIVACAINE HYDROCHLORIDE
     Indication: ANAESTHESIA
     Dosage: UNK
     Route: 008
  2. ISOFLURANE. [Concomitant]
     Active Substance: ISOFLURANE
     Dosage: UNK (MAINTENANCE)
     Route: 065
  3. LIDOCAINE. [Suspect]
     Active Substance: LIDOCAINE
     Dosage: UNK, 1.5-2 PERCENT
     Route: 008
  4. PROPOFOL. [Concomitant]
     Active Substance: PROPOFOL
     Indication: ANAESTHESIA
     Dosage: UNK
     Route: 065
  5. LIDOCAINE. [Suspect]
     Active Substance: LIDOCAINE
     Indication: ANAESTHESIA
     Dosage: UNK (4 PERCENT SPRAY) (INDUCTION)
     Route: 065
  6. FENTANYL. [Concomitant]
     Active Substance: FENTANYL
     Indication: ANAESTHESIA
     Dosage: UNK (INDUCTION)
     Route: 065
  7. ISOFLURANE. [Concomitant]
     Active Substance: ISOFLURANE
     Indication: ANAESTHESIA
     Dosage: UNK (INDUCTION)
     Route: 065
  8. BUPIVACAINE. [Suspect]
     Active Substance: BUPIVACAINE
     Indication: ANAESTHESIA
     Dosage: 20 MILLIGRAM, SINGLE
  9. FENTANYL. [Concomitant]
     Active Substance: FENTANYL
     Dosage: UNK (MAINTENANCE)
     Route: 065

REACTIONS (3)
  - Dyskinesia [Recovered/Resolved]
  - Depressed level of consciousness [Recovered/Resolved]
  - Local anaesthetic systemic toxicity [Unknown]
